FAERS Safety Report 6045994-6 (Version None)
Quarter: 2009Q1

REPORT INFORMATION
  Report Type: 
  Country: None (occurrence: None)
  Receive Date: 20090116
  Receipt Date: 20090102
  Transmission Date: 20090719
  Serious: Yes (Hospitalization)
  Sender: FDA-Public Use
  Company Number: 2009SP000002

PATIENT
  Age: 58 Year
  Sex: Male
  Weight: 90.7 kg

DRUGS (6)
  1. XOPENEX [Suspect]
     Indication: ASTHMA
     Dosage: ; 1X; INHALATION
     Route: 055
     Dates: start: 20081224, end: 20081224
  2. XOPENEX [Suspect]
     Indication: NASOPHARYNGITIS
     Dosage: ; 1X; INHALATION
     Route: 055
     Dates: start: 20081224, end: 20081224
  3. ATENOLOL [Concomitant]
  4. CRESTOR [Concomitant]
  5. ACCOLATE [Concomitant]
  6. ASPIRIN [Concomitant]

REACTIONS (3)
  - CHEST DISCOMFORT [None]
  - MUSCLE TIGHTNESS [None]
  - THROMBOSIS [None]
